FAERS Safety Report 4367007-4 (Version None)
Quarter: 2004Q2

REPORT INFORMATION
  Report Type: 
  Country: None (occurrence: None)
  Receive Date: 20040527
  Receipt Date: 20040527
  Transmission Date: 20050107
  Serious: Yes (Disabling, Other)
  Sender: FDA-Public Use
  Company Number: None

PATIENT
  Age: 36 Year
  Sex: Female
  Weight: 63.5036 kg

DRUGS (1)
  1. LEVOTHROID [Suspect]
     Indication: HYPOTHYROIDISM
     Dosage: .088 MG / DAY (ORAL)
     Route: 048
     Dates: start: 20040228, end: 20040328

REACTIONS (14)
  - ALOPECIA [None]
  - BREAST TENDERNESS [None]
  - DISTURBANCE IN ATTENTION [None]
  - DIZZINESS [None]
  - DRUG EFFECT DECREASED [None]
  - FATIGUE [None]
  - IRRITABILITY [None]
  - LETHARGY [None]
  - MOOD ALTERED [None]
  - MOOD SWINGS [None]
  - MYALGIA [None]
  - NAUSEA [None]
  - TEMPERATURE INTOLERANCE [None]
  - WEIGHT INCREASED [None]
